FAERS Safety Report 17156674 (Version 1)
Quarter: 2019Q4

REPORT INFORMATION
  Report Type: Spontaneous
  Country: US (occurrence: US)
  Receive Date: 20191216
  Receipt Date: 20191216
  Transmission Date: 20200122
  Serious: No
  Sender: FDA-Public Use
  Company Number: US-APOTEX-2019AP009826

PATIENT
  Sex: Male

DRUGS (4)
  1. TIMOLOL MALEATE. [Concomitant]
     Active Substance: TIMOLOL MALEATE
     Indication: EYE DISORDER
     Dosage: 1 GTT, BID, ONE DROP ON EACH EYE TWICE A DAY
     Route: 065
  2. KETOROLAC TROMETHAMINE. [Suspect]
     Active Substance: KETOROLAC TROMETHAMINE
     Indication: EYE DISORDER
     Dosage: UNK
     Route: 065
  3. KETOROLAC TROMETHAMINE. [Suspect]
     Active Substance: KETOROLAC TROMETHAMINE
     Indication: EYE SWELLING
  4. TIMOLOL MALEATE. [Concomitant]
     Active Substance: TIMOLOL MALEATE
     Indication: EYE SWELLING

REACTIONS (2)
  - Rash [Recovered/Resolved]
  - Eye irritation [Recovered/Resolved]
